FAERS Safety Report 11075717 (Version 1)
Quarter: 2015Q2

REPORT INFORMATION
  Report Type: Spontaneous
  Country: IN (occurrence: IN)
  Receive Date: 20150429
  Receipt Date: 20150429
  Transmission Date: 20150821
  Serious: Yes (Hospitalization, Other)
  Sender: FDA-Public Use
  Company Number: IN-AUROBINDO-AUR-APL-2015-03712

PATIENT
  Age: 15 Year
  Sex: Male

DRUGS (9)
  1. QUETIAPINE [Suspect]
     Active Substance: QUETIAPINE
     Indication: IRRITABILITY
  2. QUETIAPINE [Suspect]
     Active Substance: QUETIAPINE
     Indication: INSOMNIA
     Dosage: UPTO 600 MG, DAILY
     Route: 065
  3. OLANZAPINE. [Suspect]
     Active Substance: OLANZAPINE
     Indication: SELF INJURIOUS BEHAVIOUR
  4. OLANZAPINE. [Suspect]
     Active Substance: OLANZAPINE
     Indication: IRRITABILITY
  5. QUETIAPINE [Suspect]
     Active Substance: QUETIAPINE
     Indication: SELF INJURIOUS BEHAVIOUR
  6. OLANZAPINE. [Suspect]
     Active Substance: OLANZAPINE
     Indication: INSOMNIA
     Dosage: UPTO 10 MG, DAILY
     Route: 065
  7. RISPERIDONE 1MG [Suspect]
     Active Substance: RISPERIDONE
     Indication: INSOMNIA
     Dosage: 1 MG, DAILY
     Route: 065
  8. RISPERIDONE 1MG [Suspect]
     Active Substance: RISPERIDONE
     Indication: IRRITABILITY
  9. RISPERIDONE 1MG [Suspect]
     Active Substance: RISPERIDONE
     Indication: SELF INJURIOUS BEHAVIOUR

REACTIONS (15)
  - Oculogyric crisis [Unknown]
  - Agitation [Recovering/Resolving]
  - Condition aggravated [Unknown]
  - Aspartate aminotransferase abnormal [Recovered/Resolved]
  - Neuroleptic malignant syndrome [Unknown]
  - White blood cell count increased [Unknown]
  - Blood creatine phosphokinase increased [Recovered/Resolved]
  - Alanine aminotransferase abnormal [Recovered/Resolved]
  - Depressed level of consciousness [Recovering/Resolving]
  - Tachypnoea [Unknown]
  - Tachycardia [Unknown]
  - Hyperthermia [Unknown]
  - Decreased appetite [Unknown]
  - Hypotension [Unknown]
  - Confusional state [Unknown]
